FAERS Safety Report 9054273 (Version 1)
Quarter: 2013Q1

REPORT INFORMATION
  Report Type: Spontaneous
  Country: GB (occurrence: GB)
  Receive Date: 20130208
  Receipt Date: 20130208
  Transmission Date: 20140127
  Serious: Yes (Other)
  Sender: FDA-Public Use
  Company Number: GB-GLAXOSMITHKLINE-B0864103A

PATIENT
  Sex: Male

DRUGS (2)
  1. LAMICTAL [Suspect]
     Indication: BIPOLAR DISORDER
     Route: 065
     Dates: start: 2012
  2. LITHIUM [Concomitant]

REACTIONS (10)
  - Partial seizures [Unknown]
  - Nightmare [Unknown]
  - Arthralgia [Unknown]
  - Neck pain [Unknown]
  - Muscular weakness [Unknown]
  - Headache [Unknown]
  - Feeling abnormal [Unknown]
  - Pain [Unknown]
  - Rash [Unknown]
  - Gait disturbance [Unknown]
